FAERS Safety Report 16345769 (Version 1)
Quarter: 2019Q2

REPORT INFORMATION
  Report Type: Spontaneous
  Country: BR (occurrence: BR)
  Receive Date: 20190523
  Receipt Date: 20190523
  Transmission Date: 20190711
  Serious: Yes (Life-Threatening, Hospitalization, Other)
  Sender: FDA-Public Use
  Company Number: BR-B.I. PHARMACEUTICALS,INC./RIDGEFIELD-2019-BI-022796

PATIENT
  Sex: Male

DRUGS (1)
  1. PRADAXA [Suspect]
     Active Substance: DABIGATRAN ETEXILATE MESYLATE
     Indication: PRODUCT USED FOR UNKNOWN INDICATION
     Route: 048

REACTIONS (9)
  - Quadriplegia [Unknown]
  - Asthenia [Unknown]
  - Hypotension [Unknown]
  - Haemorrhage [Unknown]
  - Gastrointestinal erosion [Unknown]
  - Gastrointestinal mucosal exfoliation [Unknown]
  - Dyspepsia [Unknown]
  - Pyrexia [Unknown]
  - Throat irritation [Unknown]
